FAERS Safety Report 10029645 (Version 2)
Quarter: 2014Q1

REPORT INFORMATION
  Report Type: Spontaneous
  Country: US (occurrence: US)
  Receive Date: 20140322
  Receipt Date: 20140322
  Transmission Date: 20141002
  Serious: Yes (Disabling)
  Sender: FDA-Public Use
  Company Number: US-GE HEALTHCARE MEDICAL DIAGNOSTICS-OSCN-PR-0803S-0100

PATIENT
  Age: 53 Year
  Sex: Male

DRUGS (7)
  1. OMNISCAN [Suspect]
     Indication: RENAL ARTERY STENOSIS
     Dates: start: 20010914, end: 20010914
  2. OMNISCAN [Suspect]
     Indication: CHEST PAIN
     Dates: start: 20050901, end: 20050901
  3. OMNISCAN [Suspect]
     Indication: ASCITES
     Dates: start: 20051213, end: 20051213
  4. OMNISCAN [Suspect]
     Indication: CHOLELITHIASIS
     Dates: start: 20060217, end: 20060217
  5. OMNISCAN [Suspect]
     Dates: start: 20060220, end: 20060220
  6. MAGNEVIST [Suspect]
     Indication: RENAL MASS
     Route: 042
     Dates: start: 20060123, end: 20060123
  7. EPOGEN [Concomitant]
     Indication: ANAEMIA
     Dates: start: 2001

REACTIONS (1)
  - Nephrogenic systemic fibrosis [Not Recovered/Not Resolved]
